FAERS Safety Report 22932989 (Version 3)
Quarter: 2025Q2

REPORT INFORMATION
  Report Type: Spontaneous
  Country: US (occurrence: US)
  Receive Date: 20230912
  Receipt Date: 20250618
  Transmission Date: 20250717
  Serious: Yes (Death, Disabling, Other)
  Sender: CHATTEM
  Company Number: US-OPELLA-2023OHG007500

PATIENT
  Sex: Male

DRUGS (1)
  1. GOLD BOND MEDICATED ORIGINAL STRENGTH BODY [Suspect]
     Active Substance: MENTHOL
     Indication: Product used for unknown indication
     Route: 065

REACTIONS (4)
  - Desmoplastic mesothelioma [Fatal]
  - Exposure to chemical pollution [Fatal]
  - Respiratory failure [Fatal]
  - Atrial fibrillation [Fatal]
